FAERS Safety Report 10720900 (Version 2)
Quarter: 2016Q1

REPORT INFORMATION
  Report Type: Spontaneous
  Country: US (occurrence: US)
  Receive Date: 20150119
  Receipt Date: 20160314
  Transmission Date: 20160525
  Serious: No
  Sender: FDA-Public Use
  Company Number: US-PFIZER INC-2015021669

PATIENT
  Age: 74 Year
  Sex: Female
  Weight: 91 kg

DRUGS (17)
  1. METOPROLOL. [Concomitant]
     Active Substance: METOPROLOL
     Dosage: 25 MG TABLET 1/2 PER DAY
  2. XANAX [Concomitant]
     Active Substance: ALPRAZOLAM
     Dosage: 0.5 MG, 3X/DAY AS NEEDED
  3. FLUOXETINE [Concomitant]
     Active Substance: FLUOXETINE HYDROCHLORIDE
     Dosage: 20 MG, 4X/DAY
  4. HYDROCODONE/ACETAMINOPHEN [Concomitant]
     Active Substance: ACETAMINOPHEN\HYDROCODONE
     Dosage: UNK (HYDROCODONE BITARTRATE 10MG, PARACETAMOL325MG TAKE 1 OR 2 TABLET(S) BY MOUTH Q4 TO 6 HR PRN)
     Route: 048
  5. AMITRIPTYLINE HCL [Concomitant]
     Active Substance: AMITRIPTYLINE
     Dosage: UNK (50MG TABLET 3 @ HS )
  6. SOMA [Concomitant]
     Active Substance: CARISOPRODOL
     Dosage: 350 MG, 4X/DAY
     Route: 048
  7. DILANTIN [Suspect]
     Active Substance: PHENYTOIN
     Dosage: TAKE 4 CAPSULE(S) BY MOUTH DAILY)
     Route: 048
  8. FLUOXETINE [Concomitant]
     Active Substance: FLUOXETINE HYDROCHLORIDE
     Indication: DEPRESSION
     Dosage: 40 MG, 2X/DAY
  9. IBUPROFEN. [Concomitant]
     Active Substance: IBUPROFEN
     Dosage: 600 MG, 1X/DAY
  10. CLOTRIMAZOLE. [Concomitant]
     Active Substance: CLOTRIMAZOLE
     Dosage: 1 % APPLY SMALL AMOUNT TO AFFECTED AREA, 2X/DAY
  11. NEURONTIN [Concomitant]
     Active Substance: GABAPENTIN
     Dosage: 400 MG, 4X/DAY
     Route: 048
  12. ARMOUR THYROID [Concomitant]
     Active Substance: THYROID, PORCINE
     Dosage: 30 MG, DAILY
     Route: 048
  13. CEPHALEXINE [Concomitant]
     Active Substance: CEPHALEXIN
     Dosage: 500 MG, 4X/DAY
     Route: 048
  14. DILANTIN [Suspect]
     Active Substance: PHENYTOIN
     Indication: PARTIAL SEIZURES
     Dosage: 100 MG, 3X/DAY
  15. WELCHOL [Concomitant]
     Active Substance: COLESEVELAM HYDROCHLORIDE
     Dosage: 625 MG, 1X/DAY
  16. FAMVIR [Concomitant]
     Active Substance: FAMCICLOVIR
     Dosage: 500 MG, 3X/DAY
     Route: 048
  17. ASA [Concomitant]
     Active Substance: ASPIRIN
     Dosage: UNK

REACTIONS (1)
  - Nasopharyngitis [Recovering/Resolving]

NARRATIVE: CASE EVENT DATE: 20150101
